FAERS Safety Report 8890267 (Version 3)
Quarter: 2013Q4

REPORT INFORMATION
  Report Type: Spontaneous
  Country: US (occurrence: US)
  Receive Date: 20121107
  Receipt Date: 20131018
  Transmission Date: 20140711
  Serious: Yes (Hospitalization, Other)
  Sender: FDA-Public Use
  Company Number: US-PFIZER INC-2012276090

PATIENT
  Age: 58 Year
  Sex: Male

DRUGS (6)
  1. VANCOMYCIN [Suspect]
     Indication: SEPTIC ARTHRITIS STAPHYLOCOCCAL
     Dosage: UNK
  2. VANCOMYCIN [Suspect]
     Indication: OSTEOMYELITIS
     Dosage: 1 G, 2X/DAY
     Route: 042
  3. VANCOMYCIN [Suspect]
     Dosage: 3 GRAMS
  4. TOBRAMYCIN SULFATE [Suspect]
     Indication: ARTHRITIS BACTERIAL
     Dosage: 3 GRAMS, UNK
  5. HEPARIN [Concomitant]
     Indication: THROMBOSIS PROPHYLAXIS
     Route: 058
  6. DAPTOMYCIN [Concomitant]
     Indication: SEPTIC ARTHRITIS STAPHYLOCOCCAL
     Dosage: UNK

REACTIONS (1)
  - Tubulointerstitial nephritis [Recovering/Resolving]
